FAERS Safety Report 10341699 (Version 3)
Quarter: 2015Q1

REPORT INFORMATION
  Report Type: Other
  Country: US (occurrence: US)
  Receive Date: 20140725
  Receipt Date: 20150326
  Transmission Date: 20150720
  Serious: No
  Sender: FDA-Public Use
  Company Number: US-LUPIN PHARMACEUTICALS INC.-2014-01003

PATIENT
  Age: 89 Year
  Sex: Male
  Weight: 54.48 kg

DRUGS (4)
  1. SERTRALINE TABLETS USP 50 MG [Suspect]
     Active Substance: SERTRALINE HYDROCHLORIDE
     Indication: DEPRESSION
     Dates: start: 20140224, end: 20140301
  2. SERTRALINE TABLETS USP 50 MG [Suspect]
     Active Substance: SERTRALINE HYDROCHLORIDE
     Dates: start: 20140302, end: 20140306
  3. LEVOTHYROXINE [Concomitant]
     Active Substance: LEVOTHYROXINE
     Indication: THYROID DISORDER
     Route: 065
  4. ATORVASTATIN [Concomitant]
     Active Substance: ATORVASTATIN
     Indication: PRODUCT USED FOR UNKNOWN INDICATION
     Route: 065

REACTIONS (2)
  - Diarrhoea [Recovered/Resolved]
  - Product substitution issue [Recovered/Resolved]

NARRATIVE: CASE EVENT DATE: 20140224
